FAERS Safety Report 4718860-3 (Version None)
Quarter: 2005Q3

REPORT INFORMATION
  Report Type: 
  Country: None (occurrence: None)
  Receive Date: 20050719
  Receipt Date: 20050711
  Transmission Date: 20060218
  Serious: Yes (Other)
  Sender: FDA-Public Use
  Company Number: 2005-04-1992

PATIENT
  Age: 79 Year
  Sex: Male
  Weight: 81.6475 kg

DRUGS (7)
  1. CLARITIN REDITABS [Suspect]
     Indication: RHINORRHOEA
     Dosage: ONCE DAILY ORAL
     Route: 048
     Dates: start: 20050420, end: 20050421
  2. CLARITIN REDITABS [Suspect]
     Indication: SNEEZING
     Dosage: ONCE DAILY ORAL
     Route: 048
     Dates: start: 20050420, end: 20050421
  3. MONOPRIL [Concomitant]
  4. ZOCOR [Concomitant]
  5. SIMVASTATIN [Concomitant]
  6. FOSINOPRIL [Concomitant]
  7. FOLTX (FOLIC ACID/CYANOCOBALAMI/PYRIDOXINE HCL) [Concomitant]

REACTIONS (1)
  - BENIGN PROSTATIC HYPERPLASIA [None]
